FAERS Safety Report 9265085 (Version 1)
Quarter: 2013Q2

REPORT INFORMATION
  Report Type: Spontaneous
  Country: US (occurrence: None)
  Receive Date: 20130430
  Receipt Date: 20130430
  Transmission Date: 20140414
  Serious: No
  Sender: FDA-Public Use
  Company Number: None

PATIENT
  Sex: Female
  Weight: 70.31 kg

DRUGS (1)
  1. NOVOLOG [Suspect]
     Dates: start: 20110830

REACTIONS (12)
  - Dizziness [None]
  - Hunger [None]
  - Nausea [None]
  - Paraesthesia [None]
  - Hypoaesthesia [None]
  - Disturbance in attention [None]
  - Confusional state [None]
  - Vision blurred [None]
  - Anxiety [None]
  - Local swelling [None]
  - Local swelling [None]
  - Weight increased [None]
